FAERS Safety Report 18734335 (Version 1)
Quarter: 2021Q1

REPORT INFORMATION
  Report Type: Spontaneous
  Country: US (occurrence: US)
  Receive Date: 20210112
  Receipt Date: 20210112
  Transmission Date: 20210419
  Serious: Yes (Other)
  Sender: FDA-Public Use
  Company Number: None

PATIENT

DRUGS (1)
  1. HYDROCORTISONE, 5MG TABLETS [Suspect]
     Active Substance: HYDROCORTISONE

REACTIONS (4)
  - Product substitution issue [None]
  - Constipation [None]
  - Headache [None]
  - Angina pectoris [None]

NARRATIVE: CASE EVENT DATE: 20200106
